FAERS Safety Report 25470698 (Version 2)
Quarter: 2025Q3

REPORT INFORMATION
  Report Type: Spontaneous
  Country: US (occurrence: US)
  Receive Date: 20250624
  Receipt Date: 20250702
  Transmission Date: 20251021
  Serious: Yes (Other)
  Sender: ROCHE
  Company Number: US-ROCHE-10000313319

PATIENT
  Sex: Male
  Weight: 80.74 kg

DRUGS (1)
  1. ACTEMRA ACTPEN [Suspect]
     Active Substance: TOCILIZUMAB
     Indication: Giant cell arteritis
     Route: 058
     Dates: start: 202501

REACTIONS (3)
  - Transient ischaemic attack [Unknown]
  - Ill-defined disorder [Unknown]
  - Muscle spasms [Unknown]
